FAERS Safety Report 6732891-3 (Version None)
Quarter: 2010Q2

REPORT INFORMATION
  Report Type: 
  Country: None (occurrence: None)
  Receive Date: 20100519
  Receipt Date: 20100506
  Transmission Date: 20101027
  Serious: Yes (Hospitalization)
  Sender: FDA-Public Use
  Company Number: US-WATSON-2010-06412

PATIENT
  Age: 30 Year
  Sex: Male

DRUGS (5)
  1. LORAZEPAM [Suspect]
     Indication: AGITATION
     Dosage: 8 MG ON POST-INJURY DAY 6
  2. MORPHINE SULFATE INJ [Suspect]
     Indication: ANALGESIC THERAPY
     Dosage: 50 MG, UNKNOWN
  3. HALOPERIDOL (WATSON LABORATORIES) [Suspect]
     Indication: AGITATION
     Dosage: 37 MG ON POST-INJURY DAY 6
  4. BUPRENORPHINE [Suspect]
     Indication: ANALGESIC THERAPY
     Dosage: 2 MG/ 0.5 MG, STARTED DAY 4 POST-INJURY
  5. MIDAZOLAM HCL [Suspect]
     Indication: DRUG USE FOR UNKNOWN INDICATION
     Dosage: 17 MG ON  POST-INJURY DAY 6

REACTIONS (3)
  - AGITATION [None]
  - INADEQUATE ANALGESIA [None]
  - INHIBITORY DRUG INTERACTION [None]
